FAERS Safety Report 23379954 (Version 3)
Quarter: 2024Q2

REPORT INFORMATION
  Report Type: Report from Study
  Country: US (occurrence: US)
  Receive Date: 20240109
  Receipt Date: 20240615
  Transmission Date: 20240715
  Serious: Yes (Hospitalization, Other)
  Sender: FDA-Public Use
  Company Number: US-ABBVIE-4734419

PATIENT
  Sex: Female
  Weight: 39.916 kg

DRUGS (3)
  1. HUMIRA [Suspect]
     Active Substance: ADALIMUMAB
     Indication: Rheumatoid arthritis
     Dosage: FORM STRENGTH: 40 MILLIGRAMS,?CITRATE FREE
     Route: 058
     Dates: start: 20220514, end: 20230825
  2. HUMIRA [Suspect]
     Active Substance: ADALIMUMAB
     Dosage: FORM STRENGTH: 40 MILLIGRAMS,?CITRATE FREE
     Route: 058
  3. HUMIRA [Suspect]
     Active Substance: ADALIMUMAB
     Dosage: FORM STRENGTH: 40 MILLIGRAMS,?CITRATE FREE
     Route: 058
     Dates: start: 20200514

REACTIONS (7)
  - Pancreatic carcinoma stage IV [Not Recovered/Not Resolved]
  - Intestinal obstruction [Unknown]
  - Fungal pharyngitis [Recovered/Resolved]
  - Thrombosis [Recovered/Resolved]
  - Neoplasm malignant [Not Recovered/Not Resolved]
  - Ovarian cyst [Unknown]
  - Pain [Unknown]

NARRATIVE: CASE EVENT DATE: 20210101
